FAERS Safety Report 4316215-7 (Version None)
Quarter: 2004Q1

REPORT INFORMATION
  Report Type: 
  Country: None (occurrence: None)
  Receive Date: 20040312
  Receipt Date: 20040225
  Transmission Date: 20041129
  Serious: Yes (Hospitalization, Other)
  Sender: FDA-Public Use
  Company Number: WAES 0402USA01983

PATIENT
  Age: 79 Year
  Sex: Female

DRUGS (4)
  1. CEFOTIAM HYDROCHLORIDE [Concomitant]
     Dates: start: 20040222
  2. PEPCID [Suspect]
     Indication: GASTRITIS EROSIVE
     Route: 041
     Dates: start: 20040219, end: 20040224
  3. MANGANESE (UNSPECIFIED) [Concomitant]
     Dates: start: 20040220
  4. VITAMINS (UNSPECIFIED) [Concomitant]
     Indication: PARENTERAL NUTRITION
     Dates: start: 20040220

REACTIONS (4)
  - ANAEMIA [None]
  - GASTRITIS EROSIVE [None]
  - HYPOPROTEINAEMIA [None]
  - THROMBOCYTOPENIA [None]
